FAERS Safety Report 17713125 (Version 3)
Quarter: 2020Q2

REPORT INFORMATION
  Report Type: Spontaneous
  Country: AE (occurrence: AE)
  Receive Date: 20200427
  Receipt Date: 20200513
  Transmission Date: 20200714
  Serious: Yes (Death, Hospitalization, Other)
  Sender: FDA-Public Use
  Company Number: AE-ELI_LILLY_AND_COMPANY-AE202004008428

PATIENT
  Age: 60 Year
  Sex: Female

DRUGS (2)
  1. FEMARA [Concomitant]
     Active Substance: LETROZOLE
     Indication: PRODUCT USED FOR UNKNOWN INDICATION
     Dosage: UNK, UNKNOWN
     Route: 065
  2. VERZENIO [Suspect]
     Active Substance: ABEMACICLIB
     Indication: BREAST CANCER METASTATIC
     Dosage: 150 MG, BID
     Route: 065
     Dates: start: 20200311

REACTIONS (20)
  - Blood creatinine increased [Unknown]
  - Pyrexia [Unknown]
  - Dehydration [Unknown]
  - Pneumonia [Recovered/Resolved]
  - Nausea [Unknown]
  - Decreased appetite [Unknown]
  - Decreased appetite [Unknown]
  - Lethargy [Unknown]
  - Bronchiectasis [Unknown]
  - Pancytopenia [Fatal]
  - Sepsis [Fatal]
  - Renal failure [Fatal]
  - Dehydration [Unknown]
  - White blood cell count decreased [Unknown]
  - Neutropenic sepsis [Unknown]
  - Pneumonitis [Unknown]
  - Haemoglobin decreased [Unknown]
  - Lethargy [Unknown]
  - Anaemia [Unknown]
  - Pain [Unknown]

NARRATIVE: CASE EVENT DATE: 20200330
